FAERS Safety Report 18159667 (Version 2)
Quarter: 2020Q4

REPORT INFORMATION
  Report Type: Spontaneous
  Country: JP (occurrence: JP)
  Receive Date: 20200817
  Receipt Date: 20201007
  Transmission Date: 20210113
  Serious: Yes (Other)
  Sender: FDA-Public Use
  Company Number: JP-VALIDUS PHARMACEUTICALS LLC-JP-2020VAL000672

PATIENT

DRUGS (1)
  1. LASIX [Suspect]
     Active Substance: FUROSEMIDE
     Indication: OEDEMA PERIPHERAL
     Dosage: 10 MG, QD
     Route: 048

REACTIONS (5)
  - Computerised tomogram kidney abnormal [Unknown]
  - Nephrocalcinosis [Unknown]
  - Ultrasound kidney abnormal [Unknown]
  - Blood potassium decreased [Unknown]
  - pH urine decreased [Unknown]
